FAERS Safety Report 9371827 (Version 1)
Quarter: 2013Q2

REPORT INFORMATION
  Report Type: Spontaneous
  Country: GB (occurrence: GB)
  Receive Date: 20130627
  Receipt Date: 20130627
  Transmission Date: 20140414
  Serious: Yes (Hospitalization)
  Sender: FDA-Public Use
  Company Number: GB-SANOFI-AVENTIS-2013SA059662

PATIENT
  Age: 79 Year
  Sex: Female
  Weight: 61 kg

DRUGS (13)
  1. LEFLUNOMIDE [Suspect]
     Indication: RHEUMATOID ARTHRITIS
     Route: 048
     Dates: start: 20130523, end: 20130605
  2. AMLODIPINE [Concomitant]
     Indication: HYPERTENSION
     Route: 048
  3. CITALOPRAM [Concomitant]
     Indication: DEPRESSED MOOD
     Route: 048
  4. DIPYRIDAMOLE [Concomitant]
     Indication: CEREBROVASCULAR ACCIDENT PROPHYLAXIS
     Route: 048
  5. IBUPROFEN [Concomitant]
     Indication: PAIN
     Route: 048
  6. ASPIRIN [Concomitant]
     Indication: CEREBROVASCULAR ACCIDENT PROPHYLAXIS
     Route: 048
  7. PREDNISOLONE [Concomitant]
     Indication: RHEUMATOID ARTHRITIS
     Route: 048
  8. EZETIMIBE [Concomitant]
     Indication: BLOOD CHOLESTEROL INCREASED
     Route: 048
  9. PARACETAMOL [Concomitant]
     Indication: PAIN
     Route: 048
  10. TEMAZEPAM [Concomitant]
     Indication: INSOMNIA
     Route: 048
  11. OMEPRAZOLE [Concomitant]
     Indication: DYSPEPSIA
     Route: 048
  12. FENTANYL [Concomitant]
     Indication: PAIN
     Dosage: FORM: PATCH, 25 MG 72 HRS
     Route: 061
  13. GOLD [Concomitant]
     Indication: RHEUMATOID ARTHRITIS
     Dosage: 4 DOSES RECEIVED
     Dates: start: 20130305

REACTIONS (13)
  - Pulmonary embolism [Recovering/Resolving]
  - Dyspnoea [Recovering/Resolving]
  - Fatigue [Recovering/Resolving]
  - Chest pain [Recovering/Resolving]
  - Malaise [Recovering/Resolving]
  - Productive cough [Recovering/Resolving]
  - Dizziness [Recovering/Resolving]
  - Dizziness [Recovering/Resolving]
  - Hypoxia [Recovering/Resolving]
  - Respiratory failure [Recovering/Resolving]
  - Pneumonitis [Not Recovered/Not Resolved]
  - Toxicity to various agents [Unknown]
  - Pulmonary fibrosis [Unknown]
